FAERS Safety Report 23167788 (Version 1)
Quarter: 2023Q4

REPORT INFORMATION
  Report Type: Spontaneous
  Country: US (occurrence: None)
  Receive Date: 20231109
  Receipt Date: 20231109
  Transmission Date: 20240110
  Serious: Yes (Life-Threatening, Disabling, Other)
  Sender: FDA-Public Use
  Company Number: None

PATIENT
  Age: 69 Year
  Sex: Female
  Weight: 77.11 kg

DRUGS (10)
  1. AMOXICILLIN\CLAVULANATE POTASSIUM [Suspect]
     Active Substance: AMOXICILLIN\CLAVULANATE POTASSIUM
     Indication: Infection
     Dosage: OTHER QUANTITY : 2X WEEK;?FREQUENCY : 3 TIMES A DAY;?
     Route: 048
     Dates: end: 20230810
  2. PREDNISONE 7 MG AM DECREASING TO 5 MG DAILY [Concomitant]
  3. OMEPRAZOLE [Concomitant]
     Active Substance: OMEPRAZOLE
  4. PRISTIQ EXTENDED-RELEASE [Concomitant]
     Active Substance: DESVENLAFAXINE SUCCINATE
  5. METOPROLOL [Concomitant]
     Active Substance: METOPROLOL
  6. ASPIRIN [Concomitant]
     Active Substance: ASPIRIN
  7. INSULIN INJECTIONS [Concomitant]
  8. TRILEGY INHALER [Concomitant]
  9. ALBUR=TEROL RESCUE INHLAER [Concomitant]
  10. SINGULAIR [Concomitant]
     Active Substance: MONTELUKAST SODIUM

REACTIONS (2)
  - Hepatic enzyme increased [None]
  - Adrenocortical insufficiency acute [None]

NARRATIVE: CASE EVENT DATE: 20230712
